FAERS Safety Report 6216447-7 (Version None)
Quarter: 2009Q2

REPORT INFORMATION
  Report Type: 
  Country: None (occurrence: None)
  Receive Date: 20090605
  Receipt Date: 20090527
  Transmission Date: 20091009
  Serious: Yes (Death)
  Sender: FDA-Public Use
  Company Number: FR-AVENTIS-200911961FR

PATIENT
  Age: 91 Year
  Sex: Female

DRUGS (13)
  1. RILUZOLE [Suspect]
     Indication: ACCIDENTAL EXPOSURE
     Route: 048
     Dates: start: 20090507, end: 20090507
  2. PANTOPRAZOLE SODIUM [Suspect]
     Indication: ACCIDENTAL EXPOSURE
     Route: 048
     Dates: start: 20090507, end: 20090507
  3. IRBESARTAN [Suspect]
     Indication: ACCIDENTAL EXPOSURE
     Route: 048
     Dates: start: 20090507, end: 20090507
  4. DISCOTRINE [Suspect]
     Indication: ACCIDENTAL EXPOSURE
     Route: 062
     Dates: start: 20090507, end: 20090507
  5. SERESTA [Suspect]
     Indication: ACCIDENTAL EXPOSURE
     Route: 048
     Dates: start: 20090507, end: 20090507
  6. MOTILIUM [Suspect]
     Indication: ACCIDENTAL EXPOSURE
     Route: 048
     Dates: start: 20090507, end: 20090507
  7. DOLIPRANE [Concomitant]
     Indication: DRUG USE FOR UNKNOWN INDICATION
     Route: 048
     Dates: end: 20090507
  8. LOVENOX [Concomitant]
     Indication: DRUG USE FOR UNKNOWN INDICATION
     Route: 058
     Dates: end: 20090207
  9. LANTUS [Concomitant]
     Route: 058
     Dates: end: 20090507
  10. SECTRAL [Concomitant]
     Indication: DRUG USE FOR UNKNOWN INDICATION
     Route: 048
     Dates: end: 20090506
  11. LASILIX                            /00032601/ [Concomitant]
     Indication: DRUG USE FOR UNKNOWN INDICATION
     Route: 048
     Dates: end: 20090506
  12. ACUPAN [Concomitant]
     Indication: DRUG USE FOR UNKNOWN INDICATION
     Dates: end: 20090506
  13. FORLAX [Concomitant]
     Indication: DRUG USE FOR UNKNOWN INDICATION
     Route: 048
     Dates: end: 20090506

REACTIONS (3)
  - ACCIDENTAL EXPOSURE [None]
  - CARDIO-RESPIRATORY ARREST [None]
  - COMA [None]
